FAERS Safety Report 10735886 (Version 1)
Quarter: 2015Q1

REPORT INFORMATION
  Report Type: Spontaneous
  Country: US (occurrence: None)
  Receive Date: 20150121
  Receipt Date: 20150121
  Transmission Date: 20150721
  Serious: Yes (Death, Hospitalization)
  Sender: FDA-Public Use
  Company Number: NSR_01751_2015

PATIENT
  Age: 80 Year
  Sex: Male

DRUGS (15)
  1. ALLOPURINOL. [Suspect]
     Active Substance: ALLOPURINOL
     Indication: GOUT
     Route: 048
  2. AZELASTINE [Concomitant]
     Active Substance: AZELASTINE
  3. FLUTICASONE PROPIONATE. [Concomitant]
     Active Substance: FLUTICASONE PROPIONATE
  4. IRBESARTAN. [Concomitant]
     Active Substance: IRBESARTAN
  5. TERAZOSIN [Concomitant]
     Active Substance: TERAZOSIN\TERAZOSIN HYDROCHLORIDE
  6. AMLODIPINE [Concomitant]
     Active Substance: AMLODIPINE BESYLATE
  7. TRIAMTERENE AND HYDROCHLOROTHIAZIDE [Concomitant]
     Active Substance: HYDROCHLOROTHIAZIDE\TRIAMTERENE
  8. CYCLOBENZAPRINE [Concomitant]
     Active Substance: CYCLOBENZAPRINE
  9. GLYBURIDE. [Concomitant]
     Active Substance: GLYBURIDE
  10. ALBUTEROL/00139501/ [Concomitant]
  11. SIMVASTATIN. [Concomitant]
     Active Substance: SIMVASTATIN
  12. MECLIZINE/ 00072801/ [Concomitant]
  13. MONTELUKAST [Concomitant]
     Active Substance: MONTELUKAST SODIUM
  14. HYDROCODONE BITARTRATE AND ACETAMINOPHEN [Concomitant]
     Active Substance: ACETAMINOPHEN\HYDROCODONE BITARTRATE
  15. FLUTICASONE [Concomitant]
     Active Substance: FLUTICASONE\FLUTICASONE PROPIONATE

REACTIONS (26)
  - Hypotension [None]
  - Acute kidney injury [None]
  - Malaise [None]
  - Left ventricular hypertrophy [None]
  - Shock [None]
  - Diarrhoea [None]
  - Rash maculo-papular [None]
  - Dysgeusia [None]
  - Atelectasis [None]
  - Eosinophilia [None]
  - Dysuria [None]
  - Wheezing [None]
  - Decreased appetite [None]
  - Vasculitis [None]
  - Leukocytosis [None]
  - Pruritus generalised [None]
  - Oedema [None]
  - Alanine aminotransferase [None]
  - Dehydration [None]
  - Nausea [None]
  - Aspartate aminotransferase [None]
  - Hepatitis [None]
  - Chills [None]
  - Renal cyst [None]
  - Cerebrovascular accident [None]
  - Respiratory arrest [None]
